FAERS Safety Report 4397258-4 (Version None)
Quarter: 2004Q3

REPORT INFORMATION
  Report Type: 
  Country: None (occurrence: None)
  Receive Date: 20040714
  Receipt Date: 20040624
  Transmission Date: 20050211
  Serious: Yes (Other)
  Sender: FDA-Public Use
  Company Number: PHRM2004FR02218

PATIENT
  Age: 63 Year
  Sex: Female
  Weight: 72 kg

DRUGS (3)
  1. ZOMETA [Suspect]
     Indication: METASTASES TO BONE
     Dosage: 4 MG/21 DAYS
     Route: 042
     Dates: start: 20040220, end: 20040402
  2. NAVELBINE [Suspect]
     Indication: METASTASES TO LUNG
     Dosage: 30 MG/DAY
     Route: 048
     Dates: start: 20031205
  3. HERCEPTIN [Suspect]
     Indication: METASTASES TO LYMPH NODES
     Dosage: 144 MG
     Route: 042
     Dates: start: 20031205

REACTIONS (3)
  - EAR HAEMORRHAGE [None]
  - EAR PAIN [None]
  - OTORRHOEA [None]
